FAERS Safety Report 9175607 (Version 1)
Quarter: 2012Q4

REPORT INFORMATION
  Report Type: 
  Country: US (occurrence: US)
  Receive Date: 20120913
  Receipt Date: 20120913
  Transmission Date: 20130627
  Serious: Yes (Other)
  Sender: FDA-Public Use
  Company Number: US-BAYER-2012-094384

PATIENT
  Age: 57 Year
  Sex: Female
  Weight: 83.9 kg

DRUGS (7)
  1. BETASERON [Suspect]
     Indication: MULTIPLE SCLEROSIS
     Dosage: UNK
     Dates: end: 201208
  2. ADVAIR DISKUS [Concomitant]
  3. BENAZEPRIL HYDROCHLORIDE W/HYDROCHLOROTHIAZ. [Concomitant]
  4. CITALOPRAM [Concomitant]
  5. DIAZEPAM [Concomitant]
  6. HYDROCODONE [Concomitant]
  7. OMEPRAZOLE [Concomitant]

REACTIONS (1)
  - Multiple sclerosis [None]
